FAERS Safety Report 15717783 (Version 1)
Quarter: 2018Q4

REPORT INFORMATION
  Report Type: Spontaneous
  Country: US (occurrence: US)
  Receive Date: 20181213
  Receipt Date: 20181213
  Transmission Date: 20190205
  Serious: No
  Sender: FDA-Public Use
  Company Number: US-ASTELLAS-2017US050523

PATIENT
  Age: 60 Year
  Sex: Female

DRUGS (1)
  1. TARCEVA [Suspect]
     Active Substance: ERLOTINIB HYDROCHLORIDE
     Indication: LUNG NEOPLASM MALIGNANT
     Route: 048
     Dates: start: 20170707

REACTIONS (5)
  - Hair growth abnormal [Unknown]
  - Skin atrophy [Unknown]
  - Hyperaesthesia [Unknown]
  - Dry skin [Unknown]
  - Alopecia [Unknown]

NARRATIVE: CASE EVENT DATE: 20171115
